FAERS Safety Report 6293734-8 (Version None)
Quarter: 2009Q3

REPORT INFORMATION
  Report Type: 
  Country: None (occurrence: None)
  Receive Date: 20090729
  Receipt Date: 20090716
  Transmission Date: 20100115
  Serious: Yes (Hospitalization)
  Sender: FDA-Public Use
  Company Number: POMP-1000532

PATIENT
  Age: 9 Month
  Sex: Male

DRUGS (2)
  1. MYOZYME [Suspect]
     Indication: GLYCOGEN STORAGE DISEASE TYPE II
     Dosage: INTRAVENOUS
     Route: 042
     Dates: start: 20080704, end: 20090302
  2. AMIODARONE HCL [Concomitant]

REACTIONS (6)
  - ACUTE RESPIRATORY FAILURE [None]
  - ATELECTASIS [None]
  - INFUSION RELATED REACTION [None]
  - LUNG DISORDER [None]
  - METAPNEUMOVIRUS INFECTION [None]
  - OBLITERATIVE BRONCHIOLITIS [None]
